FAERS Safety Report 4276838-0 (Version None)
Quarter: 2004Q1

REPORT INFORMATION
  Report Type: 
  Country: None (occurrence: None)
  Receive Date: 20040120
  Receipt Date: 20040114
  Transmission Date: 20041129
  Serious: Yes (Other)
  Sender: FDA-Public Use
  Company Number: 2004-01-0652

PATIENT
  Age: 40 Year
  Sex: Female

DRUGS (1)
  1. CLARINEX [Suspect]
     Indication: RHINITIS
     Dosage: 15 MG ORAL 1 DOSE
     Route: 048

REACTIONS (4)
  - ASTHMA [None]
  - BRONCHOSPASM [None]
  - COUGH [None]
  - DYSPNOEA [None]
